FAERS Safety Report 5061157-5 (Version None)
Quarter: 2006Q3

REPORT INFORMATION
  Report Type: 
  Country: None (occurrence: None)
  Receive Date: 20060720
  Receipt Date: 20060705
  Transmission Date: 20061208
  Serious: Yes (Other)
  Sender: FDA-Public Use
  Company Number: 2006S1006103

PATIENT
  Age: 55 Year
  Sex: Female

DRUGS (6)
  1. ESTRADIOL [Suspect]
     Dosage: 0.05 MG/DAY; QW; TDER
     Route: 062
     Dates: start: 20060524
  2. AMLODIPINE (CON.) [Concomitant]
  3. ISOSORBIDE MONONITRATE (CON.) [Concomitant]
  4. ATORVASTATIN CALCIUM (CON.) [Concomitant]
  5. ACETYLSALICYLIC ACID (CON.) [Concomitant]
  6. POTASSIUM CHLORIDE (CON.) [Concomitant]

REACTIONS (3)
  - BLOOD PRESSURE INCREASED [None]
  - PALPITATIONS [None]
  - PHARMACEUTICAL PRODUCT COMPLAINT [None]
